FAERS Safety Report 13218849 (Version 1)
Quarter: 2017Q1

REPORT INFORMATION
  Report Type: Other
  Country: US (occurrence: US)
  Receive Date: 20170210
  Receipt Date: 20170210
  Transmission Date: 20170428
  Serious: No
  Sender: FDA-Public Use
  Company Number: US-ACORDA-ACO_122931_2016

PATIENT
  Sex: Female

DRUGS (2)
  1. TECFIDERA [Suspect]
     Active Substance: DIMETHYL FUMARATE
     Indication: PRODUCT USED FOR UNKNOWN INDICATION
     Dosage: UNK
     Route: 065
  2. AMPYRA [Suspect]
     Active Substance: DALFAMPRIDINE
     Indication: PRODUCT USED FOR UNKNOWN INDICATION
     Dosage: 10 MG, Q 12 HRS
     Route: 048
     Dates: start: 20151014

REACTIONS (10)
  - Pollakiuria [Unknown]
  - Erythema [Unknown]
  - Urinary tract infection [Unknown]
  - Dysuria [Unknown]
  - Micturition urgency [Unknown]
  - Gastritis [Unknown]
  - Abdominal distension [Unknown]
  - Flushing [Unknown]
  - Vulvovaginal pain [Unknown]
  - Nausea [Unknown]
